FAERS Safety Report 10079791 (Version 2)
Quarter: 2014Q2

REPORT INFORMATION
  Report Type: Report from Study
  Country: US (occurrence: US)
  Receive Date: 20140415
  Receipt Date: 20140421
  Transmission Date: 20141212
  Serious: Yes (Hospitalization)
  Sender: FDA-Public Use
  Company Number: US-MERCK-1404USA007114

PATIENT
  Age: 51 Year
  Sex: Female
  Weight: 49.2 kg

DRUGS (6)
  1. VORINOSTAT [Suspect]
     Indication: ACUTE MYELOID LEUKAEMIA
     Dosage: 500 MG, TID
     Route: 048
     Dates: start: 20140309, end: 20140311
  2. VORINOSTAT [Suspect]
     Dosage: UNK
     Route: 048
     Dates: start: 20140121, end: 20140123
  3. CYTARABINE [Suspect]
     Indication: ACUTE MYELOID LEUKAEMIA
     Dosage: 750MG/M2/DAY CONTINUOUS IV INFUSION ON DAYS 4-6
     Route: 042
     Dates: start: 20140312, end: 20140314
  4. CYTARABINE [Suspect]
     Dosage: 1500MG/ M2, QD  IV INFUSION ON DAYS 4-7
     Route: 042
     Dates: start: 20140124, end: 20140127
  5. IDARUBICIN [Suspect]
     Indication: ACUTE MYELOID LEUKAEMIA
     Dosage: 8MG/M2 QD OVER 15 MIN ON DAYS 4-5
     Route: 042
     Dates: start: 20140312, end: 20140313
  6. IDARUBICIN [Suspect]
     Dosage: 12MG/M2 QD OVER 15 MIN ON DAYS 4-6
     Route: 042
     Dates: start: 20140124, end: 20140126

REACTIONS (1)
  - Febrile neutropenia [Recovered/Resolved with Sequelae]
